FAERS Safety Report 9562921 (Version 4)
Quarter: 2013Q4

REPORT INFORMATION
  Report Type: Not Available
  Country: FR (occurrence: FR)
  Receive Date: 20130927
  Receipt Date: 20131210
  Transmission Date: 20140711
  Serious: Yes (Death, Hospitalization)
  Sender: FDA-Public Use
  Company Number: FR-NAPPMUNDI-GBR-2013-0015783

PATIENT
  Age: 49 Year
  Sex: Female

DRUGS (11)
  1. OXYCONTIN LP, COMPRIME PELLICULE A LIBERATION PROLONGEE [Suspect]
     Indication: PRODUCT USED FOR UNKNOWN INDICATION
     Route: 048
  2. OXYNORM, GELULE [Interacting]
     Indication: PRODUCT USED FOR UNKNOWN INDICATION
     Route: 048
  3. ZYPREXA [Interacting]
     Indication: PRODUCT USED FOR UNKNOWN INDICATION
     Route: 048
  4. LEPTICUR [Interacting]
     Indication: PRODUCT USED FOR UNKNOWN INDICATION
     Route: 048
  5. DEPAKOTE [Interacting]
     Indication: PRODUCT USED FOR UNKNOWN INDICATION
     Route: 048
  6. PRIMPERAN [Interacting]
     Indication: PRODUCT USED FOR UNKNOWN INDICATION
     Route: 048
  7. EFFEXOR [Interacting]
     Indication: PRODUCT USED FOR UNKNOWN INDICATION
     Route: 048
  8. LOXAPAC /00401801/ [Interacting]
     Indication: PRODUCT USED FOR UNKNOWN INDICATION
     Route: 048
  9. LYSANXIA [Concomitant]
  10. INNOHEP [Concomitant]
  11. ARIMIDEX [Concomitant]

REACTIONS (7)
  - Drug interaction [Fatal]
  - Gastrointestinal necrosis [Fatal]
  - Sepsis [Fatal]
  - Shock [Fatal]
  - Metabolic acidosis [Fatal]
  - Pyrexia [Not Recovered/Not Resolved]
  - Ileus [Fatal]
